FAERS Safety Report 6557319-8 (Version None)
Quarter: 2010Q1

REPORT INFORMATION
  Report Type: 
  Country: None (occurrence: None)
  Receive Date: 20100129
  Receipt Date: 20100125
  Transmission Date: 20100710
  Serious: Yes (Life-Threatening)
  Sender: FDA-Public Use
  Company Number: US-WYE-H12434409

PATIENT
  Age: 53 Year
  Sex: Female
  Weight: 68.1 kg

DRUGS (2)
  1. PRISTIQ [Suspect]
     Indication: DEPRESSION
     Dosage: 50 MG, FREQUENCY NOT SPECIFIED
     Dates: start: 20091124, end: 20091127
  2. ALPRAZOLAM [Concomitant]
     Indication: ANXIETY
     Dates: start: 20070101

REACTIONS (4)
  - CONDITION AGGRAVATED [None]
  - DIZZINESS [None]
  - MALIGNANT HYPERTENSION [None]
  - TRANSIENT ISCHAEMIC ATTACK [None]
